FAERS Safety Report 6941402-9 (Version None)
Quarter: 2010Q3

REPORT INFORMATION
  Report Type: 
  Country: None (occurrence: None)
  Receive Date: 20100824
  Receipt Date: 20100824
  Transmission Date: 20110219
  Serious: Yes (Life-Threatening, Disabling)
  Sender: FDA-Public Use
  Company Number: None

PATIENT
  Age: 74 Year
  Sex: Female
  Weight: 74.1 kg

DRUGS (1)
  1. SIMVASTATIN [Suspect]
     Indication: HIGH DENSITY LIPOPROTEIN INCREASED
     Dosage: 1 TAB SYMVASTATIN 20 MG DAILY BY MOUTH
     Dates: start: 20090501, end: 20090613

REACTIONS (7)
  - ARTHRALGIA [None]
  - DYSPHAGIA [None]
  - GAIT DISTURBANCE [None]
  - MUSCLE ATROPHY [None]
  - MYALGIA [None]
  - POLYNEUROPATHY [None]
  - RENAL PAIN [None]
